FAERS Safety Report 7280818-0 (Version None)
Quarter: 2010Q4

REPORT INFORMATION
  Report Type: 
  Country: None (occurrence: None)
  Receive Date: 20101221
  Receipt Date: 20100125
  Transmission Date: 20110411
  Serious: Yes (Other)
  Sender: FDA-Public Use
  Company Number: WWISSUE-387

PATIENT
  Sex: Female

DRUGS (1)
  1. PREDNISONE [Suspect]

REACTIONS (8)
  - BODY TEMPERATURE INCREASED [None]
  - COUGH [None]
  - EYE SWELLING [None]
  - FLUID RETENTION [None]
  - HEADACHE [None]
  - POLLAKIURIA [None]
  - THIRST [None]
  - WEIGHT INCREASED [None]
